FAERS Safety Report 11143813 (Version 1)
Quarter: 2015Q2

REPORT INFORMATION
  Report Type: Spontaneous
  Country: US (occurrence: US)
  Receive Date: 20150528
  Receipt Date: 20150528
  Transmission Date: 20150821
  Serious: No
  Sender: FDA-Public Use
  Company Number: US-JNJFOC-20150512231

PATIENT
  Age: 34 Year
  Sex: Male
  Weight: 68.04 kg

DRUGS (3)
  1. FENTANYL TRANSDERMAL SYSTEM [Suspect]
     Active Substance: FENTANYL
     Indication: NEUROFIBROMATOSIS
     Route: 062
     Dates: start: 2015
  2. NORCO [Concomitant]
     Active Substance: ACETAMINOPHEN\HYDROCODONE BITARTRATE
     Indication: PAIN
     Dosage: 325/10 MG EVERY 6 HOURS
     Route: 048
  3. BACLOFEN. [Concomitant]
     Active Substance: BACLOFEN
     Indication: BACK PAIN
     Route: 048
     Dates: start: 2014

REACTIONS (2)
  - Poor quality drug administered [Unknown]
  - Product quality issue [Unknown]

NARRATIVE: CASE EVENT DATE: 201504
